FAERS Safety Report 7815462-7 (Version None)
Quarter: 2011Q4

REPORT INFORMATION
  Report Type: 
  Country: None (occurrence: None)
  Receive Date: 20111014
  Receipt Date: 20111005
  Transmission Date: 20120403
  Serious: Yes (Hospitalization)
  Sender: FDA-Public Use
  Company Number: PHHY2011FR88025

PATIENT
  Age: 48 Year
  Sex: Female

DRUGS (3)
  1. CLARITHROMYCIN [Concomitant]
  2. ONBREZ [Suspect]
     Dosage: UNK UKN, QD
  3. MEDROL [Concomitant]

REACTIONS (3)
  - PERIPHERAL COLDNESS [None]
  - FORMICATION [None]
  - RAYNAUD'S PHENOMENON [None]
